FAERS Safety Report 8035405 (Version 3)
Quarter: 2018Q1

REPORT INFORMATION
  Report Type: Report from Study
  Country: JP (occurrence: JP)
  Receive Date: 20110714
  Receipt Date: 20180108
  Transmission Date: 20180509
  Serious: Yes (Hospitalization)
  Sender: FDA-Public Use
  Company Number: PHHO2011JP12062

PATIENT
  Age: 5 Year
  Sex: Male
  Weight: 15 kg

DRUGS (6)
  1. ILARIS [Suspect]
     Active Substance: CANAKINUMAB
     Indication: CHRONIC INFANTILE NEUROLOGICAL CUTANEOUS AND ARTICULAR SYNDROME
     Dosage: 26 MG, UNK
     Route: 058
     Dates: start: 20100106
  2. ONON [Concomitant]
     Active Substance: PRANLUKAST
     Indication: RHINITIS ALLERGIC
     Dosage: 200 MG, UNK
     Route: 048
     Dates: start: 20110524
  3. NAIXAN [Concomitant]
     Active Substance: NAPROXEN SODIUM
     Indication: CHRONIC INFANTILE NEUROLOGICAL CUTANEOUS AND ARTICULAR SYNDROME
     Dosage: 480 MG, UNK
     Route: 048
     Dates: start: 20100802
  4. SULFAMETHOXAZOLE W/TRIMETHOPRIM [Concomitant]
     Active Substance: SULFAMETHOXAZOLE\TRIMETHOPRIM
     Indication: INFECTION PROPHYLAXIS
     Dosage: 1.2 G, UNK
     Route: 048
     Dates: start: 20100115
  5. ILARIS [Suspect]
     Active Substance: CANAKINUMAB
     Dosage: 31 MG, QD
     Route: 058
     Dates: start: 20110524
  6. FLUTICASONE FUROATE [Concomitant]
     Active Substance: FLUTICASONE FUROATE

REACTIONS (1)
  - Upper respiratory tract infection [Recovered/Resolved]

NARRATIVE: CASE EVENT DATE: 20110630
